FAERS Safety Report 12225711 (Version 1)
Quarter: 2016Q1

REPORT INFORMATION
  Report Type: Spontaneous
  Country: US (occurrence: None)
  Receive Date: 20160330
  Receipt Date: 20160330
  Transmission Date: 20160526
  Serious: Yes (Other)
  Sender: FDA-Public Use
  Company Number: None

PATIENT
  Age: 45 Year
  Sex: Female
  Weight: 99.79 kg

DRUGS (11)
  1. PAXIL [Concomitant]
     Active Substance: PAROXETINE HYDROCHLORIDE
  2. LISINOPRIL. [Concomitant]
     Active Substance: LISINOPRIL
  3. ALPROZALAM [Concomitant]
  4. PROAIR HFA [Concomitant]
     Active Substance: ALBUTEROL SULFATE
  5. LEVOTHYROXINE. [Concomitant]
     Active Substance: LEVOTHYROXINE
  6. MONTALECAST [Concomitant]
  7. ALLERGY RELIEF [Concomitant]
  8. METFORMIN, 1000 MG AMNEAL [Suspect]
     Active Substance: METFORMIN HYDROCHLORIDE
     Indication: TYPE 2 DIABETES MELLITUS
     Dosage: 90 TABLETS AT BEDTIME TAKEN BY MOUTH
     Route: 048
     Dates: start: 20150101, end: 20160301
  9. SIMVASTATIN. [Concomitant]
     Active Substance: SIMVASTATIN
  10. GLIMEPIRIDE. [Concomitant]
     Active Substance: GLIMEPIRIDE
  11. PROBIOTICS [Concomitant]
     Active Substance: PROBIOTICS NOS

REACTIONS (6)
  - Diarrhoea [None]
  - Nausea [None]
  - Abdominal pain upper [None]
  - Abdominal distension [None]
  - Insomnia [None]
  - Product quality issue [None]
